FAERS Safety Report 19072938 (Version 2)
Quarter: 2021Q2

REPORT INFORMATION
  Report Type: Spontaneous
  Country: US (occurrence: US)
  Receive Date: 20210330
  Receipt Date: 20210513
  Transmission Date: 20210717
  Serious: Yes (Other)
  Sender: FDA-Public Use
  Company Number: US-ENDO PHARMACEUTICALS INC-2021-001921

PATIENT
  Age: 68 Year
  Sex: Male
  Weight: 82.54 kg

DRUGS (2)
  1. XIAFLEX [Suspect]
     Active Substance: COLLAGENASE CLOSTRIDIUM HISTOLYTICUM
     Dosage: 0.58MG, UNKNOWN; CYCLE ONE, INJECTION ONE
     Route: 026
     Dates: start: 20210322
  2. XIAFLEX [Suspect]
     Active Substance: COLLAGENASE CLOSTRIDIUM HISTOLYTICUM
     Indication: PEYRONIE^S DISEASE
     Dosage: 0.58 MG, UNKNOWN, CYCLE ONE, INJECTION TWO
     Route: 026
     Dates: start: 20210324, end: 2021

REACTIONS (1)
  - Fracture of penis [Recovering/Resolving]

NARRATIVE: CASE EVENT DATE: 20210325
